FAERS Safety Report 8956953 (Version 1)
Quarter: 2012Q4

REPORT INFORMATION
  Report Type: 
  Country: US (occurrence: US)
  Receive Date: 20121210
  Receipt Date: 20121210
  Transmission Date: 20130627
  Serious: No
  Sender: FDA-Public Use
  Company Number: US-009507513-1212USA001838

PATIENT
  Age: 59 Year
  Sex: Male

DRUGS (2)
  1. PEGINTRON [Suspect]
     Indication: CHRONIC HEPATITIS C
     Dosage: 120 mcg. once per week
     Dates: start: 20120402
  2. RIBASPHERE [Concomitant]

REACTIONS (1)
  - Pruritus [Not Recovered/Not Resolved]
